FAERS Safety Report 16911807 (Version 2)
Quarter: 2019Q4

REPORT INFORMATION
  Report Type: Spontaneous
  Country: US (occurrence: US)
  Receive Date: 20191014
  Receipt Date: 20191107
  Transmission Date: 20200122
  Serious: No
  Sender: FDA-Public Use
  Company Number: US-SA-2019SA271396

PATIENT
  Age: 57 Year
  Sex: Female

DRUGS (1)
  1. DUPIXENT [Suspect]
     Active Substance: DUPILUMAB
     Dosage: 200 MG, OTHER
     Route: 058
     Dates: start: 201907

REACTIONS (4)
  - Injection site rash [Unknown]
  - Injection site infection [Unknown]
  - Injection site reaction [Unknown]
  - Injection site injury [Recovering/Resolving]

NARRATIVE: CASE EVENT DATE: 20190910
